FAERS Safety Report 16868051 (Version 1)
Quarter: 2019Q3

REPORT INFORMATION
  Report Type: Report from Study
  Country: IL (occurrence: IL)
  Receive Date: 20190930
  Receipt Date: 20190930
  Transmission Date: 20191005
  Serious: Yes (Hospitalization)
  Sender: FDA-Public Use
  Company Number: IL-PFIZER INC-2019405891

PATIENT
  Sex: Female

DRUGS (6)
  1. BBI 608 [Suspect]
     Active Substance: NAPABUCASIN
     Indication: COLORECTAL CANCER METASTATIC
     Dosage: 240 MG, 2X/DAY
     Route: 048
     Dates: start: 20190227, end: 20190620
  2. LEUCOVORINA [Suspect]
     Active Substance: LEUCOVORIN CALCIUM
     Indication: COLORECTAL CANCER METASTATIC
     Dosage: 619 MG, EVERY 2 WEEKS
     Route: 042
     Dates: start: 20190303, end: 20190610
  3. BEVACIZUMAB. [Concomitant]
     Active Substance: BEVACIZUMAB
     Dosage: 266 MG, EVERY 2 WEEKS
     Route: 042
     Dates: start: 20190324, end: 20190527
  4. FLUORURACILO [Suspect]
     Active Substance: FLUOROURACIL
     Dosage: 3715 MG, EVERY 2 WEEKS
     Route: 042
     Dates: start: 20190603, end: 20190610
  5. FLUORURACILO [Suspect]
     Active Substance: FLUOROURACIL
     Indication: COLORECTAL CANCER METASTATIC
     Dosage: 619 MG, EVERY 2 WEEKS
     Route: 040
     Dates: start: 20190303, end: 20190610
  6. IRINOTECAN HCL [Suspect]
     Active Substance: IRINOTECAN HYDROCHLORIDE
     Indication: COLORECTAL CANCER METASTATIC
     Dosage: 279 MG, EVERY 2 WEEKS
     Route: 042
     Dates: start: 20190303, end: 20190610

REACTIONS (1)
  - Herpes zoster [Recovering/Resolving]

NARRATIVE: CASE EVENT DATE: 20190620
